FAERS Safety Report 17245442 (Version 1)
Quarter: 2020Q1

REPORT INFORMATION
  Report Type: Spontaneous
  Country: ES (occurrence: ES)
  Receive Date: 20200108
  Receipt Date: 20200108
  Transmission Date: 20200409
  Serious: Yes (Hospitalization)
  Sender: FDA-Public Use
  Company Number: ES-TEVA-2020-ES-1163443

PATIENT
  Age: 75 Year
  Sex: Male

DRUGS (5)
  1. METFORMINA [Concomitant]
     Active Substance: METFORMIN HYDROCHLORIDE
     Indication: DIABETES MELLITUS
     Dosage: 1700 MILLIGRAM DAILY;
     Route: 048
     Dates: start: 20190418
  2. GABAPENTINA [Suspect]
     Active Substance: GABAPENTIN
     Indication: ANALGESIC THERAPY
     Dosage: 1800 MILLIGRAM DAILY; 600 X THREE TIMES A DAY
     Route: 048
     Dates: start: 20190201, end: 20190823
  3. ENALAPRILO [Concomitant]
     Indication: HYPERTENSION
     Dosage: 10 MILLIGRAM DAILY;
     Dates: start: 20190701
  4. FINASTERIDA (2624A) [Concomitant]
     Active Substance: FINASTERIDE
     Indication: BENIGN PROSTATIC HYPERPLASIA
     Dosage: 5 MILLIGRAM DAILY;
     Route: 048
  5. RILUZOL (7377A) [Concomitant]
     Indication: AMYOTROPHIC LATERAL SCLEROSIS
     Dosage: 100 MILLIGRAM DAILY;
     Route: 048

REACTIONS (2)
  - Behaviour disorder [Recovered/Resolved]
  - Psychomotor hyperactivity [Recovered/Resolved]

NARRATIVE: CASE EVENT DATE: 20190812
